FAERS Safety Report 7191898-5 (Version None)
Quarter: 2010Q4

REPORT INFORMATION
  Report Type: 
  Country: None (occurrence: None)
  Receive Date: 20101223
  Receipt Date: 20101214
  Transmission Date: 20110411
  Serious: Yes (Other)
  Sender: FDA-Public Use
  Company Number: PHHO2010IT18905

PATIENT
  Sex: Female
  Weight: 90 kg

DRUGS (4)
  1. AFINITOR [Suspect]
     Indication: ACUTE MYELOID LEUKAEMIA
     Dosage: 2.5 MG, PER DAY
     Route: 048
     Dates: start: 20101207, end: 20101209
  2. MITOXANTRONE [Concomitant]
  3. CYTARABINE [Concomitant]
  4. ETOPOSIDE [Concomitant]

REACTIONS (2)
  - ASPARTATE AMINOTRANSFERASE INCREASED [None]
  - BLOOD LACTATE DEHYDROGENASE INCREASED [None]
